FAERS Safety Report 8456175-0 (Version None)
Quarter: 2012Q2

REPORT INFORMATION
  Report Type: 
  Country: None (occurrence: None)
  Receive Date: 20120621
  Receipt Date: 20120614
  Transmission Date: 20120825
  Serious: Yes (Hospitalization, Other)
  Sender: FDA-Public Use
  Company Number: PHHY2012FR041267

PATIENT
  Age: 30 Year
  Sex: Male

DRUGS (2)
  1. GILENYA [Suspect]
     Indication: MULTIPLE SCLEROSIS
     Dosage: UNK UKN, OT
     Route: 048
     Dates: start: 20120113
  2. GILENYA [Suspect]
     Dosage: UNK UKN, OT
     Route: 048
     Dates: start: 20120113

REACTIONS (4)
  - CENTRAL NERVOUS SYSTEM LESION [None]
  - IMMUNE RECONSTITUTION SYNDROME [None]
  - GENERAL PHYSICAL HEALTH DETERIORATION [None]
  - MULTIPLE SCLEROSIS RELAPSE [None]
